FAERS Safety Report 21923414 (Version 1)
Quarter: 2023Q1

REPORT INFORMATION
  Report Type: Spontaneous
  Country: US (occurrence: US)
  Receive Date: 20230129
  Receipt Date: 20230129
  Transmission Date: 20230418
  Serious: No
  Sender: FDA-Public Use
  Company Number: US-CIPLA LTD.-2022US06516

PATIENT
  Sex: Female

DRUGS (1)
  1. ALBUTEROL [Suspect]
     Active Substance: ALBUTEROL
     Indication: Product used for unknown indication
     Dosage: UNK
     Dates: start: 20221026

REACTIONS (5)
  - Drug ineffective [Unknown]
  - Product delivery mechanism issue [Unknown]
  - Device delivery system issue [Unknown]
  - Device use issue [Unknown]
  - Device issue [Unknown]

NARRATIVE: CASE EVENT DATE: 20221026
